FAERS Safety Report 14653596 (Version 1)
Quarter: 2018Q1

REPORT INFORMATION
  Report Type: Spontaneous
  Country: US (occurrence: US)
  Receive Date: 20180319
  Receipt Date: 20180319
  Transmission Date: 20180509
  Serious: No
  Sender: FDA-Public Use
  Company Number: US-JNJFOC-20180231230

PATIENT
  Age: 66 Year
  Sex: Male
  Weight: 122.02 kg

DRUGS (2)
  1. TYLENOL REGULAR STRENGTH [Suspect]
     Active Substance: ACETAMINOPHEN
     Indication: PAIN
     Dosage: TAKING HYDRO WITH ONE PARACETAMOL REGULAR STRENGTH THEN 4 HOURS IF HE NEED TAKE 2 PARACETAMOL RS
     Route: 065
     Dates: start: 20180217
  2. HYDROCODONE BITARTRATE AND ACETAMINOPHEN [Suspect]
     Active Substance: ACETAMINOPHEN\HYDROCODONE BITARTRATE
     Indication: PAIN
     Route: 065

REACTIONS (1)
  - Drug administration error [Unknown]
